FAERS Safety Report 6382454-7 (Version None)
Quarter: 2009Q3

REPORT INFORMATION
  Report Type: 
  Country: None (occurrence: None)
  Receive Date: 20090928
  Receipt Date: 20090928
  Transmission Date: 20100115
  Serious: No
  Sender: FDA-Public Use
  Company Number: None

PATIENT
  Sex: Female
  Weight: 58.9676 kg

DRUGS (2)
  1. LOMITROGRINE 150MG DO NOT KNOW [Suspect]
     Indication: AFFECTIVE DISORDER
     Dosage: 150MG 1 DAILY PO
     Route: 048
     Dates: start: 20080930, end: 20081229
  2. LOMITROGRINE 150MG DO NOT KNOW [Suspect]
     Indication: CYCLOTHYMIC DISORDER
     Dosage: 150MG 1 DAILY PO
     Route: 048
     Dates: start: 20080930, end: 20081229

REACTIONS (4)
  - DRUG INEFFECTIVE [None]
  - ECONOMIC PROBLEM [None]
  - PRODUCT SUBSTITUTION ISSUE [None]
  - UNEVALUABLE EVENT [None]
